FAERS Safety Report 5060016-1 (Version None)
Quarter: 2006Q3

REPORT INFORMATION
  Report Type: 
  Country: None (occurrence: None)
  Receive Date: 20060724
  Receipt Date: 20060717
  Transmission Date: 20061208
  Serious: Yes (Hospitalization)
  Sender: FDA-Public Use
  Company Number: US-BRISTOL-MYERS SQUIBB COMPANY-13445283

PATIENT
  Age: 65 Year
  Sex: Male

DRUGS (9)
  1. ERBITUX [Suspect]
     Indication: NON-SMALL CELL LUNG CANCER
     Route: 042
     Dates: start: 20060707, end: 20060707
  2. PACLITAXEL [Suspect]
     Indication: NON-SMALL CELL LUNG CANCER
     Route: 042
     Dates: start: 20060707, end: 20060707
  3. CARBOPLATIN [Suspect]
     Indication: NON-SMALL CELL LUNG CANCER
     Route: 042
     Dates: start: 20060707, end: 20060707
  4. ASPIRIN [Concomitant]
     Dates: start: 20000301
  5. CANDESARTAN CILEXETIL [Concomitant]
     Dates: start: 20000301
  6. FUROSEMIDE [Concomitant]
     Dates: start: 20000301
  7. ATORVASTATIN CALCIUM [Concomitant]
     Dates: start: 20000301
  8. HYDROCODONE BITARTRATE [Concomitant]
     Dates: start: 20000520
  9. ALBUTEROL SULFATE [Concomitant]
     Dates: start: 20000501

REACTIONS (1)
  - DYSPNOEA [None]
